FAERS Safety Report 13005871 (Version 1)
Quarter: 2016Q4

REPORT INFORMATION
  Report Type: Spontaneous
  Country: PL (occurrence: PL)
  Receive Date: 20161207
  Receipt Date: 20161207
  Transmission Date: 20170207
  Serious: Yes (Other)
  Sender: FDA-Public Use
  Company Number: PL-BAYER-2016-228511

PATIENT
  Age: 62 Year
  Sex: Male
  Weight: 90 kg

DRUGS (12)
  1. CLOPIDOGREL [Suspect]
     Active Substance: CLOPIDOGREL BISULFATE
     Indication: JOINT ARTHROPLASTY
  2. CONTROLOC [Concomitant]
     Active Substance: PANTOPRAZOLE SODIUM
     Indication: GASTROINTESTINAL DISORDER
     Dosage: 20 MG, QD
     Route: 048
     Dates: start: 20160321
  3. SYNTARPEN [Suspect]
     Active Substance: CLOXACILLIN SODIUM
     Indication: INFECTION
     Dosage: 4 DF, UNK
     Route: 042
     Dates: start: 20160324
  4. SYNTARPEN [Suspect]
     Active Substance: CLOXACILLIN SODIUM
     Indication: INFLAMMATION
  5. BISOPROLOL [Concomitant]
     Active Substance: BISOPROLOL
     Indication: MYOCARDIAL ISCHAEMIA
     Dosage: 5 MG, QD
     Route: 048
     Dates: start: 20160321
  6. ACETYLSALICYLIC ACID({=100 MG) [Suspect]
     Active Substance: ASPIRIN
     Indication: MYOCARDIAL ISCHAEMIA
     Dosage: 75 MG, QD
     Route: 048
     Dates: start: 20160321
  7. CLOPIDOGREL [Suspect]
     Active Substance: CLOPIDOGREL BISULFATE
     Indication: INFECTION
     Dosage: 75 MG, UNK
     Route: 048
     Dates: start: 20160321, end: 20160331
  8. CLOPIDOGREL [Suspect]
     Active Substance: CLOPIDOGREL BISULFATE
     Indication: INFLAMMATION
  9. SYNTARPEN [Suspect]
     Active Substance: CLOXACILLIN SODIUM
     Indication: JOINT ARTHROPLASTY
  10. GENTAMYCIN [Concomitant]
     Active Substance: GENTAMICIN
     Indication: INFECTION
     Dosage: 400 MG, QD
     Route: 042
     Dates: start: 20160321, end: 20160330
  11. GENTAMYCIN [Concomitant]
     Active Substance: GENTAMICIN
     Indication: INFLAMMATION
  12. ANTIBIOTICS [Concomitant]
     Active Substance: UNSPECIFIED INGREDIENT
     Indication: WOUND

REACTIONS (2)
  - Petechiae [Recovering/Resolving]
  - Purpura [Recovering/Resolving]

NARRATIVE: CASE EVENT DATE: 20160330
